FAERS Safety Report 13487058 (Version 1)
Quarter: 2017Q2

REPORT INFORMATION
  Report Type: Spontaneous
  Country: JP (occurrence: JP)
  Receive Date: 20170426
  Receipt Date: 20170426
  Transmission Date: 20170830
  Serious: Yes (Other)
  Sender: FDA-Public Use
  Company Number: JP-NAPPMUNDI-GBR-2017-0044894

PATIENT
  Age: 88 Year
  Sex: Female

DRUGS (3)
  1. MS CONTIN [Suspect]
     Active Substance: MORPHINE SULFATE
     Indication: CANCER PAIN
     Dosage: 5 MG, BID (10 MG, DAILY)
     Route: 048
     Dates: start: 20170417, end: 20170417
  2. MS CONTIN [Suspect]
     Active Substance: MORPHINE SULFATE
     Dosage: 10 MG, PM (ONCE IN THE EVENING)
     Route: 048
     Dates: start: 20170416, end: 20170416
  3. MS CONTIN [Suspect]
     Active Substance: MORPHINE SULFATE
     Dosage: 10 MG, BID  (20 MG, DAILY)
     Route: 048
     Dates: start: 20170414, end: 20170415

REACTIONS (1)
  - Delirium [Recovered/Resolved]

NARRATIVE: CASE EVENT DATE: 20170414
